FAERS Safety Report 10787094 (Version 1)
Quarter: 2015Q1

REPORT INFORMATION
  Report Type: Report from Study
  Country: US (occurrence: US)
  Receive Date: 20150211
  Receipt Date: 20150211
  Transmission Date: 20150721
  Serious: Yes (Death)
  Sender: FDA-Public Use
  Company Number: US-INTERMUNE, INC.-201502IM009473

PATIENT
  Age: 82 Year
  Sex: Male

DRUGS (10)
  1. LIPITOR [Concomitant]
     Active Substance: ATORVASTATIN CALCIUM
  2. PROAIR HFA [Concomitant]
     Active Substance: ALBUTEROL SULFATE
  3. ESBRIET [Suspect]
     Active Substance: PIRFENIDONE
     Indication: IDIOPATHIC PULMONARY FIBROSIS
     Route: 048
     Dates: start: 20141216
  4. OMEPRAZOLE. [Concomitant]
     Active Substance: OMEPRAZOLE
  5. ALBUTEROL. [Concomitant]
     Active Substance: ALBUTEROL
  6. FISH OIL [Concomitant]
     Active Substance: FISH OIL
  7. FUROSEMIDE. [Concomitant]
     Active Substance: FUROSEMIDE
  8. MULTIVITAMIN [Concomitant]
     Active Substance: VITAMINS
  9. PLAVIX [Concomitant]
     Active Substance: CLOPIDOGREL BISULFATE
  10. CASODEX [Concomitant]
     Active Substance: BICALUTAMIDE

REACTIONS (1)
  - Death [Fatal]

NARRATIVE: CASE EVENT DATE: 20150123
